FAERS Safety Report 7504498-1 (Version None)
Quarter: 2011Q2

REPORT INFORMATION
  Report Type: 
  Country: None (occurrence: None)
  Receive Date: 20110525
  Receipt Date: 20110520
  Transmission Date: 20111010
  Serious: Yes (Other)
  Sender: FDA-Public Use
  Company Number: GB-PFIZER INC-2011110093

PATIENT
  Age: 81 Year
  Sex: Male

DRUGS (8)
  1. LEVETIRACETAM [Concomitant]
  2. PRAVASTATIN [Concomitant]
  3. ACETAMINOPHEN WITH PROPOXYPHENE HCL TAB [Concomitant]
  4. FUROSEMIDE [Concomitant]
  5. ATENOLOL [Concomitant]
  6. LAMOTRIGINE [Concomitant]
  7. RAMIPRIL [Suspect]
     Dosage: 5 MG, 1X/DAY
     Dates: start: 20060101
  8. CLOPIDOGREL [Concomitant]

REACTIONS (5)
  - LICHEN PLANUS [None]
  - LIP SWELLING [None]
  - ORAL PAIN [None]
  - ANGIOEDEMA [None]
  - SKIN ULCER [None]
